FAERS Safety Report 19181842 (Version 1)
Quarter: 2021Q2

REPORT INFORMATION
  Report Type: Spontaneous
  Country: US (occurrence: US)
  Receive Date: 20210426
  Receipt Date: 20210426
  Transmission Date: 20210717
  Serious: No
  Sender: FDA-Public Use
  Company Number: US-BAUSCH-BL-2021-010246

PATIENT
  Age: 27 Year
  Sex: Female

DRUGS (1)
  1. OPCON?A [Suspect]
     Active Substance: NAPHAZOLINE HYDROCHLORIDE\PHENIRAMINE MALEATE
     Indication: EYE ALLERGY
     Dosage: USED ONLY ONCE
     Route: 047
     Dates: start: 20210314, end: 20210314

REACTIONS (1)
  - Drug ineffective [Unknown]
